FAERS Safety Report 13390428 (Version 5)
Quarter: 2017Q3

REPORT INFORMATION
  Report Type: Spontaneous
  Country: US (occurrence: US)
  Receive Date: 20170331
  Receipt Date: 20170731
  Transmission Date: 20171127
  Serious: No
  Sender: FDA-Public Use
  Company Number: US-PFIZER INC-2017138082

PATIENT
  Age: 74 Year
  Sex: Female
  Weight: 68.93 kg

DRUGS (3)
  1. IBRANCE [Suspect]
     Active Substance: PALBOCICLIB
     Indication: BREAST CANCER
     Dosage: 125 MG, CYCLIC (1 CAPSULE 1-21/DAYS/DAILY Q28/DAYS)
     Route: 048
     Dates: start: 20161101
  2. IBRANCE [Suspect]
     Active Substance: PALBOCICLIB
     Dosage: 125 MG, CYCLIC(1 CAPSULE 1-21/DAYS/DAILY Q28/DAYS)
     Route: 048
     Dates: start: 20161101
  3. IBRANCE [Suspect]
     Active Substance: PALBOCICLIB
     Dosage: 125 MG, CYCLIC(1 CAPSULE 1-21/DAYS/DAILY Q28/DAYS)
     Route: 048
     Dates: start: 20161101

REACTIONS (11)
  - Neoplasm progression [Unknown]
  - Hypokinesia [Unknown]
  - Diarrhoea [Unknown]
  - Eating disorder [Unknown]
  - Dry mouth [Unknown]
  - Dry skin [Unknown]
  - Malaise [Unknown]
  - Decreased appetite [Unknown]
  - Insomnia [Unknown]
  - Depression [Unknown]
  - Fatigue [Unknown]
